FAERS Safety Report 8097019 (Version 2)
Quarter: 2014Q2

REPORT INFORMATION
  Report Type: Spontaneous
  Country: US (occurrence: US)
  Receive Date: 20110818
  Receipt Date: 20140512
  Transmission Date: 20141212
  Serious: Yes (Hospitalization)
  Sender: FDA-Public Use
  Company Number: US-US-EMD SERONO, INC.-7076492

PATIENT
  Sex: Female

DRUGS (19)
  1. REBIF [Suspect]
     Indication: MULTIPLE SCLEROSIS
     Route: 058
     Dates: start: 20100127
  2. LYRICA [Concomitant]
     Indication: FIBROMYALGIA
     Dates: start: 2002
  3. WELLBUTRIN [Concomitant]
     Indication: DEPRESSION
  4. WELLBUTRIN [Concomitant]
     Indication: ANXIETY
  5. CYMBALTA [Concomitant]
     Indication: DEPRESSION
  6. BACLOFEN [Concomitant]
     Indication: MUSCLE SPASMS
  7. NORVASC                            /00972401/ [Concomitant]
     Indication: HYPERTENSION
  8. CELEXA                             /00582602/ [Concomitant]
     Indication: DEPRESSION
  9. LORAZEPAM [Concomitant]
     Indication: ANXIETY
  10. FLONASE [Concomitant]
     Indication: HYPERSENSITIVITY
  11. FLONASE [Concomitant]
     Indication: ASTHMA
  12. SINGULAIR                          /01362601/ [Concomitant]
     Indication: HYPERSENSITIVITY
  13. SINGULAIR                          /01362601/ [Concomitant]
     Indication: ASTHMA
  14. ALBUTEROL                          /00139501/ [Concomitant]
     Indication: HYPERSENSITIVITY
  15. ALBUTEROL                          /00139501/ [Concomitant]
     Indication: ASTHMA
  16. ASPIRIN                            /00002701/ [Concomitant]
     Indication: CARDIAC DISORDER
  17. PRILOSEC                           /00661201/ [Concomitant]
     Indication: PRODUCT USED FOR UNKNOWN INDICATION
  18. CALCIUM [Concomitant]
     Indication: PRODUCT USED FOR UNKNOWN INDICATION
  19. SYNTHROID [Concomitant]
     Indication: THYROID DISORDER

REACTIONS (10)
  - Spondylitis [Recovered/Resolved]
  - Intervertebral disc degeneration [Unknown]
  - Cyst [Not Recovered/Not Resolved]
  - Meniscus injury [Not Recovered/Not Resolved]
  - Musculoskeletal discomfort [Recovering/Resolving]
  - Dysuria [Not Recovered/Not Resolved]
  - Back disorder [Not Recovered/Not Resolved]
  - Arthralgia [Not Recovered/Not Resolved]
  - Injection site erythema [Not Recovered/Not Resolved]
  - Injection site bruising [Unknown]
